FAERS Safety Report 5099553-2 (Version None)
Quarter: 2006Q3

REPORT INFORMATION
  Report Type: 
  Country: None (occurrence: None)
  Receive Date: 20060906
  Receipt Date: 20060818
  Transmission Date: 20061208
  Serious: Yes (Other)
  Sender: FDA-Public Use
  Company Number: 2006104874

PATIENT

DRUGS (2)
  1. LYRICA [Suspect]
     Indication: DRUG USE FOR UNKNOWN INDICATION
     Dosage: (2 IN 1 D),
  2. DRUG (DRUG), UNSPECIFIED [Concomitant]

REACTIONS (2)
  - OEDEMA PERIPHERAL [None]
  - UNEVALUABLE EVENT [None]
